FAERS Safety Report 9499420 (Version 1)
Quarter: 2013Q4

REPORT INFORMATION
  Report Type: Spontaneous
  Country: US (occurrence: None)
  Receive Date: 20130903
  Receipt Date: 20130903
  Transmission Date: 20140711
  Serious: Yes (Hospitalization)
  Sender: FDA-Public Use
  Company Number: None

PATIENT
  Age: 74 Year
  Sex: Male
  Weight: 76.66 kg

DRUGS (2)
  1. CARFILZOMIB [Suspect]
     Indication: PLASMA CELL MYELOMA
     Dosage: 2DAYS/WEEK/3WEEKSIV
     Route: 042
     Dates: start: 20130604, end: 20130807
  2. DOXIL [Suspect]
     Indication: PLASMA CELL MYELOMA
     Dosage: 1 DOSE/3WEEK CYCLE  IV
     Route: 042
     Dates: start: 20130605, end: 20130806

REACTIONS (1)
  - No adverse event [None]
